FAERS Safety Report 7521467-6 (Version None)
Quarter: 2011Q2

REPORT INFORMATION
  Report Type: 
  Country: None (occurrence: None)
  Receive Date: 20110603
  Receipt Date: 20101228
  Transmission Date: 20111010
  Serious: Yes (Hospitalization)
  Sender: FDA-Public Use
  Company Number: US-BAYER-200943503NA

PATIENT
  Age: 31 Year
  Sex: Female
  Weight: 77.098 kg

DRUGS (2)
  1. DROSPIRENONE AND ETHINYL ESTRADIOL [Suspect]
     Indication: ORAL CONTRACEPTION
     Route: 048
     Dates: start: 20080801, end: 20090124
  2. VALTREX [Concomitant]

REACTIONS (6)
  - DEEP VEIN THROMBOSIS [None]
  - CHEST PAIN [None]
  - PAIN IN EXTREMITY [None]
  - DYSPNOEA [None]
  - THROMBOSIS [None]
  - PULMONARY EMBOLISM [None]
